FAERS Safety Report 25885365 (Version 1)
Quarter: 2025Q4

REPORT INFORMATION
  Report Type: Spontaneous
  Country: US (occurrence: US)
  Receive Date: 20251006
  Receipt Date: 20251006
  Transmission Date: 20260117
  Serious: No
  Sender: SANOFI AVENTIS
  Company Number: US-SANOFI-02671445

PATIENT
  Sex: Female

DRUGS (1)
  1. QFITLIA [Suspect]
     Active Substance: FITUSIRAN
     Dosage: NA (NOT APPLICABLE)

REACTIONS (2)
  - Accidental exposure to product [Unknown]
  - Exposure via skin contact [Unknown]

NARRATIVE: CASE EVENT DATE: 20250929
